FAERS Safety Report 7291148-5 (Version None)
Quarter: 2011Q1

REPORT INFORMATION
  Report Type: 
  Country: None (occurrence: None)
  Receive Date: 20110214
  Receipt Date: 20110203
  Transmission Date: 20110831
  Serious: Yes (Hospitalization)
  Sender: FDA-Public Use
  Company Number: DE-ELI_LILLY_AND_COMPANY-DE201011007482

PATIENT
  Age: 69 Year
  Sex: Female

DRUGS (6)
  1. FORTEO [Suspect]
     Indication: OSTEOPOROSIS
     Route: 058
     Dates: start: 20100826
  2. ANALGESICS [Concomitant]
  3. ANTIHYPERTENSIVES [Concomitant]
  4. DIURETICS [Concomitant]
  5. CALCIUM [Concomitant]
  6. CORTISONE [Concomitant]
     Dosage: 20 MG, UNK

REACTIONS (2)
  - SPINAL OPERATION [None]
  - BACK PAIN [None]
